FAERS Safety Report 25912431 (Version 1)
Quarter: 2025Q4

REPORT INFORMATION
  Report Type: Spontaneous
  Country: US (occurrence: US)
  Receive Date: 20251013
  Receipt Date: 20251013
  Transmission Date: 20260118
  Serious: No
  Sender: BIOGEN
  Company Number: US-BIOGEN-2025BI01326541

PATIENT
  Sex: Female

DRUGS (2)
  1. VUMERITY [Suspect]
     Active Substance: DIROXIMEL FUMARATE
     Indication: Multiple sclerosis
     Route: 050
     Dates: start: 20210218
  2. VUMERITY [Suspect]
     Active Substance: DIROXIMEL FUMARATE
     Dosage: 1 TABLET IN THE MORNING AND 2 IN THE EVENING
     Route: 050

REACTIONS (5)
  - Underdose [Unknown]
  - Gastric ulcer [Unknown]
  - White blood cell count decreased [Unknown]
  - Hepatic lesion [Unknown]
  - Gastrointestinal disorder [Unknown]
